FAERS Safety Report 5316486-4 (Version None)
Quarter: 2007Q2

REPORT INFORMATION
  Report Type: 
  Country: None (occurrence: None)
  Receive Date: 20070430
  Receipt Date: 20070412
  Transmission Date: 20071010
  Serious: Yes (Life-Threatening, Hospitalization)
  Sender: FDA-Public Use
  Company Number: 8023343

PATIENT
  Age: 58 Year
  Sex: Male
  Weight: 75 kg

DRUGS (7)
  1. KEPPRA [Suspect]
     Indication: EPILEPSY
     Dosage: 250 MG 2/D PO
     Route: 048
     Dates: start: 20070209, end: 20070201
  2. KEPPRA [Suspect]
     Indication: EPILEPSY
     Dosage: 500 MG 2/D PO
     Route: 048
     Dates: start: 20070201, end: 20070219
  3. CARBAMAZEPINE [Concomitant]
  4. ASAFLOW [Concomitant]
  5. PANTOZOL /01263202/ [Concomitant]
  6. AMLODIPINE [Concomitant]
  7. COVERSYL /00790701/ [Concomitant]

REACTIONS (2)
  - ANGIOEDEMA [None]
  - DERMATITIS ALLERGIC [None]
